FAERS Safety Report 16015002 (Version 1)
Quarter: 2019Q1

REPORT INFORMATION
  Report Type: Report from Study
  Country: None (occurrence: BR)
  Receive Date: 20190227
  Receipt Date: 20190227
  Transmission Date: 20190418
  Serious: Yes (Other)
  Sender: FDA-Public Use
  Company Number: BR-ABBVIE-19K-020-2678482-00

PATIENT
  Sex: Male
  Weight: 96 kg

DRUGS (2)
  1. HUMIRA [Suspect]
     Active Substance: ADALIMUMAB
     Route: 058
  2. HUMIRA [Suspect]
     Active Substance: ADALIMUMAB
     Indication: PSORIASIS
     Route: 058
     Dates: start: 20151202

REACTIONS (7)
  - Cartilage atrophy [Not Recovered/Not Resolved]
  - Gait disturbance [Not Recovered/Not Resolved]
  - Insomnia [Unknown]
  - Arthralgia [Unknown]
  - Skin wound [Recovering/Resolving]
  - Pain in extremity [Unknown]
  - Muscular weakness [Unknown]

NARRATIVE: CASE EVENT DATE: 2016
